FAERS Safety Report 5167834-X (Version None)
Quarter: 2006Q4

REPORT INFORMATION
  Report Type: 
  Country: None (occurrence: None)
  Receive Date: 20061130
  Receipt Date: 20061130
  Transmission Date: 20070319
  Serious: Yes (Other)
  Sender: FDA-Public Use
  Company Number: None

PATIENT
  Age: 36 Year
  Sex: Female
  Weight: 58.0604 kg

DRUGS (1)
  1. FLUTICASONE PROPIONATE [Suspect]
     Indication: SINUS CONGESTION
     Dosage: 1 SPRAY DAILY NASAL
     Route: 045
     Dates: start: 20061027, end: 20061110

REACTIONS (1)
  - EPISTAXIS [None]
